FAERS Safety Report 10206961 (Version 3)
Quarter: 2015Q2

REPORT INFORMATION
  Report Type: Spontaneous
  Country: US (occurrence: US)
  Receive Date: 20140530
  Receipt Date: 20150526
  Transmission Date: 20150821
  Serious: No
  Sender: FDA-Public Use
  Company Number: US-MYLANLABS-2014S1008294

PATIENT
  Sex: Male
  Weight: 65.77 kg

DRUGS (10)
  1. REYATAZ [Concomitant]
     Active Substance: ATAZANAVIR SULFATE
     Indication: HIV INFECTION
     Dosage: UNK
  2. ISENTRESS [Concomitant]
     Active Substance: RALTEGRAVIR POTASSIUM
     Indication: HEPATITIS
     Dosage: 400 MG,BID
  3. LOXAPINE. [Concomitant]
     Active Substance: LOXAPINE
     Indication: MENTAL DISORDER
     Dosage: 15 MG,HS
  4. MULTI VITAMIN [Concomitant]
     Active Substance: VITAMINS
     Dosage: UNK UNK,QD
  5. CEROVITE [Concomitant]
     Dosage: UNK
  6. BUPROPION HYDROCHLORIDE EXTENDED RELEASE SR [Suspect]
     Active Substance: BUPROPION HYDROCHLORIDE
     Indication: DEPRESSION
     Dosage: 150 MG,AM
     Route: 048
     Dates: start: 2013
  7. TRUVADA [Concomitant]
     Active Substance: EMTRICITABINE\TENOFOVIR DISOPROXIL FUMARATE
     Dosage: UNK UNK,QD
  8. NORVIR [Concomitant]
     Active Substance: RITONAVIR
     Indication: HIV INFECTION
     Dosage: UNK UNK,QD
  9. ENALAPRIL [Concomitant]
     Active Substance: ENALAPRIL
     Indication: BLOOD PRESSURE
     Dosage: 20 MG,QD
  10. OLANZAPINE. [Concomitant]
     Active Substance: OLANZAPINE
     Dosage: 5 MG,HS

REACTIONS (1)
  - Skin odour abnormal [Not Recovered/Not Resolved]

NARRATIVE: CASE EVENT DATE: 2013
